FAERS Safety Report 10744307 (Version 1)
Quarter: 2015Q1

REPORT INFORMATION
  Report Type: Spontaneous
  Country: US (occurrence: US)
  Receive Date: 20150128
  Receipt Date: 20150128
  Transmission Date: 20150721
  Serious: No
  Sender: FDA-Public Use
  Company Number: US-PFIZER INC-2015029979

PATIENT
  Age: 77 Year
  Sex: Male

DRUGS (1)
  1. XALKORI [Suspect]
     Active Substance: CRIZOTINIB
     Indication: LUNG NEOPLASM
     Dosage: 250 MG, 2X/DAY
     Dates: start: 20141224

REACTIONS (3)
  - Odynophagia [Unknown]
  - Diarrhoea [Unknown]
  - Constipation [Unknown]
